FAERS Safety Report 8020110-X (Version None)
Quarter: 2012Q1

REPORT INFORMATION
  Report Type: 
  Country: None (occurrence: None)
  Receive Date: 20120103
  Receipt Date: 20111228
  Transmission Date: 20120608
  Serious: Yes (Hospitalization)
  Sender: FDA-Public Use
  Company Number: RU-SANOFI-AVENTIS-2011SA085258

PATIENT
  Age: 62 Year
  Sex: Female

DRUGS (6)
  1. ACETYLSALICYLIC ACID/MAGNESIUM [Concomitant]
     Indication: THROMBOSIS PROPHYLAXIS
     Route: 048
  2. PLAVIX [Suspect]
     Indication: THROMBOSIS PROPHYLAXIS
     Route: 048
     Dates: start: 20100101
  3. BISOPROLOL FUMARATE [Concomitant]
     Route: 048
  4. ROSUVASTATIN [Concomitant]
     Route: 048
  5. PLAVIX [Suspect]
     Route: 048
     Dates: start: 20100101
  6. PRESTARIUM [Concomitant]
     Route: 048

REACTIONS (4)
  - DRUG INEFFECTIVE [None]
  - INCORRECT DRUG ADMINISTRATION DURATION [None]
  - IN-STENT CORONARY ARTERY RESTENOSIS [None]
  - EXTRASYSTOLES [None]
